FAERS Safety Report 8845072 (Version 1)
Quarter: 2012Q4

REPORT INFORMATION
  Report Type: Spontaneous
  Country: US (occurrence: None)
  Receive Date: 20120925
  Receipt Date: 20120925
  Transmission Date: 20130627
  Serious: Yes (Hospitalization)
  Sender: FDA-Public Use
  Company Number: RB-32739-2011

PATIENT
  Age: 55 Year
  Sex: Female

DRUGS (3)
  1. SUBOXONE [Suspect]
     Indication: DRUG DEPENDENCE
     Route: 060
     Dates: start: 2010, end: 201002
  2. SUBOXONE [Suspect]
     Indication: DRUG DEPENDENCE
     Dosage: self tapering doses
     Route: 060
     Dates: start: 201102, end: 20110902
  3. SUBOXONE [Suspect]
     Indication: DRUG DEPENDENCE
     Route: 060
     Dates: start: 201109

REACTIONS (4)
  - Underdose [None]
  - Asthenia [None]
  - Pain in extremity [None]
  - Insomnia [None]
